FAERS Safety Report 18254458 (Version 1)
Quarter: 2020Q3

REPORT INFORMATION
  Report Type: Spontaneous
  Country: AU (occurrence: AU)
  Receive Date: 20200910
  Receipt Date: 20200910
  Transmission Date: 20201103
  Serious: Yes (Other)
  Sender: FDA-Public Use
  Company Number: AU-009507513-2009AUS000546

PATIENT
  Age: 49 Year
  Sex: Female

DRUGS (1)
  1. IMPLANON NXT [Suspect]
     Active Substance: ETONOGESTREL
     Dosage: 1 IMPLANT
     Route: 059
     Dates: start: 201910, end: 2019

REACTIONS (9)
  - Lung disorder [Unknown]
  - Nausea [Unknown]
  - Cardiac failure [Recovered/Resolved]
  - Choking [Unknown]
  - Crying [Unknown]
  - Near death experience [Unknown]
  - Feelings of worthlessness [Unknown]
  - Dyspnoea [Unknown]
  - Pain [Unknown]

NARRATIVE: CASE EVENT DATE: 201910
